FAERS Safety Report 8777689 (Version 2)
Quarter: 2013Q1

REPORT INFORMATION
  Report Type: Spontaneous
  Country: DE (occurrence: DE)
  Receive Date: 20120912
  Receipt Date: 20130124
  Transmission Date: 20140127
  Serious: Yes (Hospitalization)
  Sender: FDA-Public Use
  Company Number: DE-ABBOTT-12P-062-0975875-00

PATIENT
  Age: 16 Year
  Sex: Male
  Weight: 68 kg

DRUGS (6)
  1. SEVORANE [Suspect]
     Indication: STUPOR
     Dosage: 1.6-18 VOL%
     Route: 055
     Dates: start: 20120418, end: 20120418
  2. PARACETAMOL [Suspect]
     Indication: ANALGESIC THERAPY
     Dosage: 1000 MG ONCE
     Route: 042
     Dates: start: 20120418, end: 20120418
  3. NIMBEX [Concomitant]
     Indication: MUSCLE RELAXANT THERAPY
     Dosage: 8 MG ONCE
     Route: 042
     Dates: start: 20120418, end: 20120418
  4. PROPOFOL FRESENIUS [Concomitant]
     Indication: STUPOR
     Dosage: 200 MG ONCE
     Route: 042
     Dates: start: 20120418, end: 20120418
  5. FENTANYL [Concomitant]
     Indication: ANALGESIC THERAPY
     Dosage: 0.3 MG ONCE
     Route: 042
     Dates: start: 20120418, end: 20120418
  6. PIRITRAMIDE [Concomitant]
     Indication: ANALGESIC THERAPY
     Dosage: 7.5 MG ONCE
     Route: 042
     Dates: start: 20120418, end: 20120418

REACTIONS (7)
  - Disturbance in attention [Unknown]
  - Alanine aminotransferase increased [Unknown]
  - Aspartate aminotransferase increased [Unknown]
  - Blood bilirubin increased [Unknown]
  - Bradypnoea [Unknown]
  - Cyanosis [Unknown]
  - Prothrombin time prolonged [Unknown]
